FAERS Safety Report 9382405 (Version 1)
Quarter: 2013Q3

REPORT INFORMATION
  Report Type: Spontaneous
  Country: BR (occurrence: BR)
  Receive Date: 20130703
  Receipt Date: 20130703
  Transmission Date: 20140515
  Serious: Yes (Other)
  Sender: FDA-Public Use
  Company Number: BR-AMGEN-BRASP2013046007

PATIENT
  Age: 28 Year
  Sex: Female
  Weight: 52 kg

DRUGS (5)
  1. ENBREL [Suspect]
     Indication: ANKYLOSING SPONDYLITIS
     Dosage: 25 MG, 2 TIMES/WK
     Route: 065
     Dates: start: 2009
  2. ENBREL [Suspect]
     Dosage: 50 MG, ONCE WEEKLY
     Route: 065
     Dates: start: 2012, end: 201305
  3. HYDROXYCHLOROQUINE [Suspect]
     Dosage: 1 TABLET ONCE DAILY
     Dates: start: 2009
  4. ACEFLAN [Concomitant]
     Indication: ANTIINFLAMMATORY THERAPY
     Dosage: THREE TIMES DAILY
     Dates: start: 2009
  5. AZULFIN [Concomitant]
     Dosage: UNK UNK, UNK

REACTIONS (3)
  - Immunodeficiency [Unknown]
  - Skin irritation [Unknown]
  - Mycobacterium tuberculosis complex test positive [Unknown]
